FAERS Safety Report 16165946 (Version 1)
Quarter: 2019Q2

REPORT INFORMATION
  Report Type: Spontaneous
  Country: US (occurrence: US)
  Receive Date: 20190406
  Receipt Date: 20190406
  Transmission Date: 20190711
  Serious: No
  Sender: FDA-Public Use
  Company Number: US-JNJFOC-20190303094

PATIENT
  Age: 96 Year
  Sex: Male
  Weight: 72.58 kg

DRUGS (2)
  1. TYLENOL EXTRA STRENGTH [Suspect]
     Active Substance: ACETAMINOPHEN
     Indication: ARTHRALGIA
     Dosage: TWO CAPLETS IN THE MORNING AND ONE AT NIGHT
     Route: 048
     Dates: end: 20181231
  2. TYLENOL EXTRA STRENGTH [Suspect]
     Active Substance: ACETAMINOPHEN
     Indication: SLEEP DISORDER THERAPY
     Dosage: TWO CAPLETS IN THE MORNING AND ONE AT NIGHT
     Route: 048
     Dates: end: 20181231

REACTIONS (2)
  - Product use issue [Unknown]
  - Product use in unapproved indication [Unknown]
